FAERS Safety Report 21223560 (Version 1)
Quarter: 2022Q3

REPORT INFORMATION
  Report Type: Spontaneous
  Country: US (occurrence: US)
  Receive Date: 20220817
  Receipt Date: 20220817
  Transmission Date: 20221026
  Serious: No
  Sender: FDA-Public Use
  Company Number: US-JNJFOC-20220815084

PATIENT
  Age: 58 Year
  Sex: Female

DRUGS (32)
  1. TYLENOL [Suspect]
     Active Substance: ACETAMINOPHEN
     Indication: Sinus congestion
     Dosage: MAXIMUM DOSES
     Route: 065
     Dates: start: 2022
  2. TYLENOL [Suspect]
     Active Substance: ACETAMINOPHEN
     Indication: Throat irritation
  3. TYLENOL [Suspect]
     Active Substance: ACETAMINOPHEN
     Indication: Cough
  4. TYLENOL [Suspect]
     Active Substance: ACETAMINOPHEN
     Indication: Headache
  5. TYLENOL [Suspect]
     Active Substance: ACETAMINOPHEN
     Indication: Oropharyngeal pain
  6. TYLENOL [Suspect]
     Active Substance: ACETAMINOPHEN
     Indication: Sneezing
  7. TYLENOL [Suspect]
     Active Substance: ACETAMINOPHEN
     Indication: Lymphadenopathy
  8. TYLENOL [Suspect]
     Active Substance: ACETAMINOPHEN
     Indication: Ear discomfort
  9. MOTRIN [Suspect]
     Active Substance: IBUPROFEN
     Indication: Sinus congestion
     Dosage: MAXIMUM DOSES
     Route: 065
     Dates: start: 2022
  10. MOTRIN [Suspect]
     Active Substance: IBUPROFEN
     Indication: Throat irritation
  11. MOTRIN [Suspect]
     Active Substance: IBUPROFEN
     Indication: Cough
  12. MOTRIN [Suspect]
     Active Substance: IBUPROFEN
     Indication: Sneezing
  13. MOTRIN [Suspect]
     Active Substance: IBUPROFEN
     Indication: Lymphadenopathy
  14. MOTRIN [Suspect]
     Active Substance: IBUPROFEN
     Indication: Ear discomfort
  15. MOTRIN [Suspect]
     Active Substance: IBUPROFEN
     Indication: Oropharyngeal pain
  16. MOTRIN [Suspect]
     Active Substance: IBUPROFEN
     Indication: Headache
  17. MUCINEX [Concomitant]
     Active Substance: GUAIFENESIN
     Indication: Sinus congestion
     Route: 065
     Dates: start: 2022
  18. MUCINEX [Concomitant]
     Active Substance: GUAIFENESIN
     Indication: Throat irritation
  19. MUCINEX [Concomitant]
     Active Substance: GUAIFENESIN
     Indication: Cough
  20. MUCINEX [Concomitant]
     Active Substance: GUAIFENESIN
     Indication: Sneezing
  21. MUCINEX [Concomitant]
     Active Substance: GUAIFENESIN
     Indication: Lymphadenopathy
  22. MUCINEX [Concomitant]
     Active Substance: GUAIFENESIN
     Indication: Ear discomfort
  23. MUCINEX [Concomitant]
     Active Substance: GUAIFENESIN
     Indication: Headache
  24. MUCINEX [Concomitant]
     Active Substance: GUAIFENESIN
     Indication: Oropharyngeal pain
  25. SUDAFED [Concomitant]
     Active Substance: PSEUDOEPHEDRINE HYDROCHLORIDE
     Indication: Sinus congestion
     Route: 065
     Dates: start: 2022
  26. SUDAFED [Concomitant]
     Active Substance: PSEUDOEPHEDRINE HYDROCHLORIDE
     Indication: Throat irritation
  27. SUDAFED [Concomitant]
     Active Substance: PSEUDOEPHEDRINE HYDROCHLORIDE
     Indication: Cough
  28. SUDAFED [Concomitant]
     Active Substance: PSEUDOEPHEDRINE HYDROCHLORIDE
     Indication: Sneezing
  29. SUDAFED [Concomitant]
     Active Substance: PSEUDOEPHEDRINE HYDROCHLORIDE
     Indication: Lymphadenopathy
  30. SUDAFED [Concomitant]
     Active Substance: PSEUDOEPHEDRINE HYDROCHLORIDE
     Indication: Ear discomfort
  31. SUDAFED [Concomitant]
     Active Substance: PSEUDOEPHEDRINE HYDROCHLORIDE
     Indication: Headache
  32. SUDAFED [Concomitant]
     Active Substance: PSEUDOEPHEDRINE HYDROCHLORIDE
     Indication: Oropharyngeal pain

REACTIONS (1)
  - Product use in unapproved indication [Unknown]

NARRATIVE: CASE EVENT DATE: 20220101
